FAERS Safety Report 8053227-4 (Version None)
Quarter: 2011Q4

REPORT INFORMATION
  Report Type: 
  Country: None (occurrence: None)
  Receive Date: 20111213
  Receipt Date: 20110713
  Transmission Date: 20120403
  Serious: Yes (Other)
  Sender: FDA-Public Use
  Company Number: 2011SP032782

PATIENT
  Age: 59 Year
  Sex: Female

DRUGS (3)
  1. SAPHRIS [Suspect]
     Indication: BIPOLAR DISORDER
     Dosage: 10 MG; HS; SL 5 MG; BID; SL
     Route: 060
     Dates: start: 20101101
  2. CYMBALTA [Concomitant]
  3. VITAMINE E [Concomitant]

REACTIONS (2)
  - TARDIVE DYSKINESIA [None]
  - INAPPROPRIATE SCHEDULE OF DRUG ADMINISTRATION [None]
